FAERS Safety Report 20384663 (Version 1)
Quarter: 2022Q1

REPORT INFORMATION
  Report Type: Spontaneous
  Country: US (occurrence: None)
  Receive Date: 20220127
  Receipt Date: 20220127
  Transmission Date: 20220423
  Serious: Yes (Hospitalization)
  Sender: FDA-Public Use
  Company Number: None

PATIENT
  Sex: Male

DRUGS (1)
  1. TOBRAMYCIN [Suspect]
     Active Substance: TOBRAMYCIN
     Indication: Antiviral prophylaxis
     Dosage: 1 AMPULE TWICE DAILY NEBULIZER?
     Route: 055
     Dates: start: 202004

REACTIONS (1)
  - COVID-19 [None]
